FAERS Safety Report 22591018 (Version 1)
Quarter: 2023Q2

REPORT INFORMATION
  Report Type: Spontaneous
  Country: US (occurrence: None)
  Receive Date: 20230611
  Receipt Date: 20230611
  Transmission Date: 20230721
  Serious: Yes (Life-Threatening, Hospitalization, Disabling, Other)
  Sender: FDA-Public Use
  Company Number: None

PATIENT
  Age: 72 Year
  Sex: Female
  Weight: 72 kg

DRUGS (1)
  1. CLARISCAN [Suspect]
     Active Substance: GADOTERATE MEGLUMINE
     Indication: Cerebral venous thrombosis
     Dosage: OTHER QUANTITY : 15 ML;?OTHER FREQUENCY : WITH MRV;?
     Route: 042
     Dates: start: 20221221, end: 20230509

REACTIONS (18)
  - Contraindicated product administered [None]
  - Headache [None]
  - Coordination abnormal [None]
  - Amnesia [None]
  - Tremor [None]
  - Dysgraphia [None]
  - Fall [None]
  - Unresponsive to stimuli [None]
  - Speech disorder [None]
  - Skin burning sensation [None]
  - Myalgia [None]
  - Bone pain [None]
  - Insomnia [None]
  - Restlessness [None]
  - Dyspnoea [None]
  - Urinary retention [None]
  - Hunger [None]
  - Contrast media toxicity [None]

NARRATIVE: CASE EVENT DATE: 20230509
